FAERS Safety Report 20668871 (Version 2)
Quarter: 2022Q2

REPORT INFORMATION
  Report Type: Spontaneous
  Country: US (occurrence: US)
  Receive Date: 20220404
  Receipt Date: 20220516
  Transmission Date: 20220720
  Serious: Yes (Hospitalization, Other)
  Sender: FDA-Public Use
  Company Number: US-BIOGEN-2022BI01108557

PATIENT
  Age: 64 Year
  Sex: Female

DRUGS (2)
  1. AMPYRA [Suspect]
     Active Substance: DALFAMPRIDINE
     Indication: Product used for unknown indication
     Dosage: UNK
     Route: 065
  2. TECFIDERA [Suspect]
     Active Substance: DIMETHYL FUMARATE
     Indication: Multiple sclerosis
     Dosage: UNK
     Route: 065
     Dates: start: 202010

REACTIONS (8)
  - Heart valve replacement [Recovered/Resolved]
  - Heart rate decreased [Unknown]
  - Blood pressure decreased [Unknown]
  - Fall [Recovered/Resolved]
  - Limb injury [Unknown]
  - Loss of control of legs [Unknown]
  - Tooth extraction [Unknown]
  - Product dose omission issue [Unknown]

NARRATIVE: CASE EVENT DATE: 20211101
